FAERS Safety Report 7108635-2 (Version None)
Quarter: 2010Q4

REPORT INFORMATION
  Report Type: 
  Country: None (occurrence: None)
  Receive Date: 20101117
  Receipt Date: 20101111
  Transmission Date: 20110411
  Serious: Yes (Other)
  Sender: FDA-Public Use
  Company Number: JP-PFIZER INC-2010136202

PATIENT
  Age: 60 Year
  Sex: Female

DRUGS (3)
  1. CADUET [Suspect]
     Dosage: 5 MG/10 MG 1X/DAY
     Route: 048
     Dates: start: 20101020, end: 20101025
  2. NORVASC [Concomitant]
     Dosage: UNK
     Route: 048
  3. LIPITOR [Concomitant]
     Dosage: UNK
     Route: 048

REACTIONS (2)
  - BLOOD PRESSURE INCREASED [None]
  - FEELING ABNORMAL [None]
